FAERS Safety Report 22010238 (Version 2)
Quarter: 2024Q2

REPORT INFORMATION
  Report Type: Spontaneous
  Country: CA (occurrence: CA)
  Receive Date: 20230220
  Receipt Date: 20240506
  Transmission Date: 20240716
  Serious: Yes (Hospitalization, Other)
  Sender: FDA-Public Use
  Company Number: None

PATIENT

DRUGS (24)
  1. VIREAD [Suspect]
     Active Substance: TENOFOVIR DISOPROXIL FUMARATE
     Indication: Product used for unknown indication
     Dosage: UNKNOWN
     Route: 065
  2. LAMIVUDINE [Suspect]
     Active Substance: LAMIVUDINE
     Indication: HIV infection
     Dosage: UNK
     Route: 065
  3. KALETRA [Suspect]
     Active Substance: LOPINAVIR\RITONAVIR
     Indication: HIV infection
     Dosage: 800 MG
     Route: 048
  4. ATAZANAVIR SULFATE [Suspect]
     Active Substance: ATAZANAVIR SULFATE
     Indication: HIV infection
     Dosage: UNK
     Route: 065
  5. BUPROPION HYDROCHLORIDE [Suspect]
     Active Substance: BUPROPION HYDROCHLORIDE
     Indication: Depression
     Dosage: UNK
     Route: 065
  6. CITALOPRAM HYDROBROMIDE [Suspect]
     Active Substance: CITALOPRAM HYDROBROMIDE
     Indication: Psychotic disorder
     Dosage: UNK
     Route: 065
  7. CLONAZEPAM [Suspect]
     Active Substance: CLONAZEPAM
     Indication: Depression
     Dosage: UNK
     Route: 065
  8. CLONAZEPAM [Suspect]
     Active Substance: CLONAZEPAM
     Indication: Bipolar disorder
  9. QUETIAPINE FUMARATE [Suspect]
     Active Substance: QUETIAPINE FUMARATE
     Indication: Depression
     Dosage: UNK
     Route: 048
  10. QUETIAPINE FUMARATE [Suspect]
     Active Substance: QUETIAPINE FUMARATE
     Indication: Bipolar disorder
  11. RALTEGRAVIR POTASSIUM [Suspect]
     Active Substance: RALTEGRAVIR POTASSIUM
     Indication: HIV infection
     Dosage: 800.0 MG, QD
     Route: 065
  12. RISPERIDONE [Suspect]
     Active Substance: RISPERIDONE
     Indication: Depression
     Dosage: UNK
     Route: 065
  13. RITONAVIR [Suspect]
     Active Substance: RITONAVIR
     Indication: Depression
     Dosage: UNK
     Route: 065
  14. RITONAVIR [Suspect]
     Active Substance: RITONAVIR
     Indication: HIV infection
  15. SERTRALINE HYDROCHLORIDE [Suspect]
     Active Substance: SERTRALINE HYDROCHLORIDE
     Indication: Bipolar disorder
     Dosage: UNK
     Route: 065
  16. VALPROATE SODIUM [Suspect]
     Active Substance: VALPROATE SODIUM
     Indication: Bipolar disorder
     Dosage: UNK
     Route: 065
  17. SUSTIVA [Suspect]
     Active Substance: EFAVIRENZ
     Indication: HIV infection
     Dosage: 800 MG
     Route: 065
  18. ENFUVIRTIDE [Suspect]
     Active Substance: ENFUVIRTIDE
     Indication: HIV infection
     Dosage: UNK
     Route: 065
  19. ZOPICLONE [Suspect]
     Active Substance: ZOPICLONE
     Indication: Bipolar disorder
     Dosage: UNK
     Route: 065
  20. CELECOXIB [Suspect]
     Active Substance: CELECOXIB
     Indication: Psychotic disorder
     Dosage: UNK
  21. CITALOPRAM [Suspect]
     Active Substance: CITALOPRAM\CITALOPRAM HYDROBROMIDE
     Indication: Mental disorder
     Dosage: UNK
  22. ISENTRESS [Suspect]
     Active Substance: RALTEGRAVIR POTASSIUM
     Indication: HIV infection
     Dosage: 800 MG, QD
  23. VALPROIC ACID [Suspect]
     Active Substance: VALPROIC ACID
     Indication: Bipolar disorder
     Dosage: UNK
  24. EMTRIVA [Concomitant]
     Active Substance: EMTRICITABINE
     Indication: Product used for unknown indication
     Dosage: UNK
     Route: 065

REACTIONS (10)
  - Anxiety [Unknown]
  - Depression suicidal [Unknown]
  - Depressive symptom [Unknown]
  - Paranoia [Unknown]
  - Psychiatric decompensation [Unknown]
  - Psychomotor skills impaired [Unknown]
  - Psychotic disorder [Unknown]
  - Suicidal ideation [Unknown]
  - Tearfulness [Unknown]
  - Product use in unapproved indication [Unknown]
